FAERS Safety Report 8990199 (Version 2)
Quarter: 2013Q1

REPORT INFORMATION
  Report Type: Spontaneous
  Country: JP (occurrence: JP)
  Receive Date: 20121228
  Receipt Date: 20130110
  Transmission Date: 20140127
  Serious: Yes (Hospitalization)
  Sender: FDA-Public Use
  Company Number: JP-PFIZER INC-2012324036

PATIENT
  Age: 38 Year
  Sex: Female

DRUGS (2)
  1. EPIRUBICIN HYDROCHLORIDE [Suspect]
     Indication: INVASIVE DUCTAL BREAST CARCINOMA
     Dosage: UNK
  2. CYCLOPHOSPHAMIDE [Suspect]
     Indication: INVASIVE DUCTAL BREAST CARCINOMA
     Dosage: UNK

REACTIONS (5)
  - Threatened labour [Unknown]
  - Premature rupture of membranes [Unknown]
  - Neutropenia [Unknown]
  - Nail disorder [Unknown]
  - Alopecia [Unknown]
